FAERS Safety Report 4417032-X (Version None)
Quarter: 2004Q2

REPORT INFORMATION
  Report Type: 
  Country: None (occurrence: None)
  Receive Date: 20040628
  Receipt Date: 20040326
  Transmission Date: 20050107
  Serious: Yes (Other)
  Sender: FDA-Public Use
  Company Number: 355537

PATIENT
  Age: 42 Year
  Sex: Male

DRUGS (3)
  1. COPEGUS [Suspect]
     Indication: DRUG USE FOR UNKNOWN INDICATION
     Dosage: ORAL
     Route: 048
     Dates: start: 20031215
  2. PEGASYS [Suspect]
     Dosage: SUBCUTANEOUS
     Route: 058
     Dates: start: 20031215
  3. REMERON [Concomitant]

REACTIONS (19)
  - ANOREXIA [None]
  - DEPRESSION [None]
  - DISEASE RECURRENCE [None]
  - EAR INFECTION [None]
  - FATIGUE [None]
  - FURUNCLE [None]
  - GINGIVAL PAIN [None]
  - HAEMATOCHEZIA [None]
  - HAEMORRHAGIC DIATHESIS [None]
  - HORDEOLUM [None]
  - INFECTION [None]
  - INFLUENZA LIKE ILLNESS [None]
  - INSOMNIA [None]
  - IRRITABILITY [None]
  - MOOD ALTERED [None]
  - ORAL INFECTION [None]
  - STAPHYLOCOCCAL INFECTION [None]
  - SUICIDAL IDEATION [None]
  - TONGUE DISORDER [None]
